FAERS Safety Report 8244554-6 (Version None)
Quarter: 2012Q1

REPORT INFORMATION
  Report Type: 
  Country: None (occurrence: None)
  Receive Date: 20120329
  Receipt Date: 20120321
  Transmission Date: 20120608
  Serious: Yes (Death)
  Sender: FDA-Public Use
  Company Number: US-INCYTE CORPORATION-2012IN000282

PATIENT
  Sex: Male
  Weight: 100.68 kg

DRUGS (1)
  1. JAKAFI [Suspect]
     Dosage: UNK

REACTIONS (2)
  - GENERALISED OEDEMA [None]
  - CARDIAC FAILURE CONGESTIVE [None]
